FAERS Safety Report 16501137 (Version 1)
Quarter: 2019Q3

REPORT INFORMATION
  Report Type: Spontaneous
  Country: US (occurrence: US)
  Receive Date: 20190628
  Receipt Date: 20190628
  Transmission Date: 20191004
  Serious: Yes (Other)
  Sender: FDA-Public Use
  Company Number: None

PATIENT
  Age: 47 Year
  Sex: Male
  Weight: 67.5 kg

DRUGS (2)
  1. ATOMOXETINE HCL [Concomitant]
     Active Substance: ATOMOXETINE HYDROCHLORIDE
     Dates: start: 20180117, end: 20180217
  2. ATOMOXETINE HCL [Suspect]
     Active Substance: ATOMOXETINE HYDROCHLORIDE
     Indication: ATTENTION DEFICIT/HYPERACTIVITY DISORDER
     Dates: start: 20180117, end: 20180217

REACTIONS (3)
  - Headache [None]
  - Product substitution issue [None]
  - Nausea [None]
